FAERS Safety Report 7681231-4 (Version None)
Quarter: 2011Q3

REPORT INFORMATION
  Report Type: 
  Country: None (occurrence: None)
  Receive Date: 20110810
  Receipt Date: 20110728
  Transmission Date: 20111222
  Serious: Yes (Death, Hospitalization)
  Sender: FDA-Public Use
  Company Number: 1000019970

PATIENT
  Age: 73 Year
  Sex: Female
  Weight: 107 kg

DRUGS (26)
  1. ASPIRIN [Concomitant]
  2. FURIX(FUROSEMIDE) [Concomitant]
  3. DUSPATALIN(MEBEVERINE HYDROCHLORIDE) [Concomitant]
  4. ISOPTIN [Concomitant]
  5. SPIRON(SPIRONOLACTONE) [Concomitant]
  6. BERODUAL(IPRATROPIUM, FENOTEROL) [Concomitant]
  7. GABAPENTIN [Concomitant]
  8. MAGNESIA(MAGNESIUM) (MAGNESIUM) [Concomitant]
  9. CEFUROXIME [Concomitant]
  10. POTASSIUM CHLORIDE [Concomitant]
  11. SIMVASTATIN [Concomitant]
  12. WARFARIN SODIUM [Concomitant]
  13. PRIMIDONE [Concomitant]
  14. DICLON RAPID(DICLOFENAC SODIUM) [Concomitant]
  15. UNIKALK PLUS(CALCIUM D3) [Concomitant]
  16. SPIRIVA [Concomitant]
  17. ACETAMINOPHEN [Concomitant]
  18. HAIPREX(METHENAMINE HIPPURATE) [Concomitant]
  19. ROFLUMILAST(ROFLUMILAST) (500 MICROGRAM, TABLETS) [Suspect]
     Indication: CHRONIC OBSTRUCTIVE PULMONARY DISEASE
     Dosage: 500 MCG (500 MCG,1 IN 1 D), ORAL
     Route: 048
     Dates: start: 20110112, end: 20110112
  20. ROFLUMILAST(ROFLUMILAST) (500 MICROGRAM, TABLETS) [Suspect]
     Indication: CHRONIC OBSTRUCTIVE PULMONARY DISEASE
     Dosage: 500 MCG (500 MCG,1 IN 1 D), ORAL
     Route: 048
     Dates: start: 20110125
  21. LOSATRIX(LOSARTAN) [Concomitant]
  22. PINEX(SULFOGAIACOL) [Concomitant]
  23. PREDNISOLONE [Concomitant]
  24. PROGYNON(ESTRADIOL VALERATE) [Concomitant]
  25. SYMBICORT [Concomitant]
  26. BETOLVEX(CYANOCOBALAMIN-TANNING COMPLEX) [Concomitant]

REACTIONS (10)
  - WHITE BLOOD CELL COUNT INCREASED [None]
  - URINARY TRACT INFECTION [None]
  - DECREASED APPETITE [None]
  - DELIRIUM [None]
  - LOSS OF CONSCIOUSNESS [None]
  - FALL [None]
  - PSYCHOMOTOR RETARDATION [None]
  - COMPLETED SUICIDE [None]
  - DEPRESSION [None]
  - DYSPNOEA [None]
